FAERS Safety Report 5448397-8 (Version None)
Quarter: 2007Q3

REPORT INFORMATION
  Report Type: 
  Country: None (occurrence: None)
  Receive Date: 20070906
  Receipt Date: 20070824
  Transmission Date: 20080115
  Serious: Yes (Other)
  Sender: FDA-Public Use
  Company Number: 2007-163394-NL

PATIENT
  Age: 24 Year
  Sex: Female
  Weight: 70.3 kg

DRUGS (2)
  1. NUVARING [Suspect]
     Indication: CONTRACEPTION
     Dates: start: 20030101, end: 20040101
  2. NUVARING [Suspect]
     Indication: CONTRACEPTION
     Dates: start: 20070601

REACTIONS (1)
  - SMEAR CERVIX ABNORMAL [None]
